FAERS Safety Report 6871033-0 (Version None)
Quarter: 2010Q3

REPORT INFORMATION
  Report Type: 
  Country: None (occurrence: None)
  Receive Date: 20100723
  Receipt Date: 20100719
  Transmission Date: 20110219
  Serious: Yes (Hospitalization)
  Sender: FDA-Public Use
  Company Number: US-GILEAD-2010-0030527

PATIENT
  Sex: Female

DRUGS (9)
  1. LETAIRIS [Suspect]
     Indication: PULMONARY ARTERIAL HYPERTENSION
     Route: 048
     Dates: start: 20090610
  2. FUROSEMIDE [Concomitant]
  3. LISINOPRIL [Concomitant]
  4. METOPROLOL SUCCINATE [Concomitant]
  5. NEXIUM [Concomitant]
  6. ACETAMINOPHEN AND HYDROCODONE BITARTRATE [Concomitant]
  7. HECTOROL [Concomitant]
  8. KLOR-CON [Concomitant]
  9. FERROUS SULFATE [Concomitant]

REACTIONS (1)
  - PNEUMONIA [None]
